FAERS Safety Report 21201484 (Version 1)
Quarter: 2022Q3

REPORT INFORMATION
  Report Type: Spontaneous
  Country: US (occurrence: None)
  Receive Date: 20220810
  Receipt Date: 20220810
  Transmission Date: 20221027
  Serious: Yes (Other)
  Sender: FDA-Public Use
  Company Number: None

PATIENT
  Age: 43 Year
  Sex: Female
  Weight: 85.5 kg

DRUGS (1)
  1. ASCORBIC ACID\HERBALS [Suspect]
     Active Substance: ASCORBIC ACID\HERBALS
     Indication: Acrochordon excision

REACTIONS (4)
  - Application site pain [None]
  - Wound infection [None]
  - Scar [None]
  - Application site pruritus [None]

NARRATIVE: CASE EVENT DATE: 20210601
